FAERS Safety Report 9974807 (Version 1)
Quarter: 2014Q1

REPORT INFORMATION
  Report Type: Report from Study
  Country: US (occurrence: US)
  Receive Date: 20140306
  Receipt Date: 20140306
  Transmission Date: 20141002
  Serious: No
  Sender: FDA-Public Use
  Company Number: US-ABBVIE-13P-163-1155130-00

PATIENT
  Sex: Male

DRUGS (5)
  1. HUMIRA [Suspect]
     Indication: PSORIATIC ARTHROPATHY
     Route: 058
     Dates: start: 20130720
  2. HUMIRA [Suspect]
     Indication: PSORIASIS
  3. ZYRTEC [Concomitant]
     Indication: SEASONAL ALLERGY
  4. CLARITIN [Concomitant]
     Indication: SEASONAL ALLERGY
  5. SUDAFED [Concomitant]
     Indication: SEASONAL ALLERGY

REACTIONS (1)
  - Local swelling [Not Recovered/Not Resolved]
